FAERS Safety Report 9608529 (Version 1)
Quarter: 2013Q4

REPORT INFORMATION
  Report Type: Spontaneous
  Country: JP (occurrence: JP)
  Receive Date: 20131009
  Receipt Date: 20131009
  Transmission Date: 20140711
  Serious: Yes (Life-Threatening)
  Sender: FDA-Public Use
  Company Number: JP-ASTRAZENECA-2013SE74679

PATIENT
  Age: 41 Year
  Sex: Female

DRUGS (2)
  1. CRESTOR [Suspect]
     Dosage: 2.5MGX 30 TABLETS
     Route: 048
  2. OTHER FIVE UNSPECIFIED DRUGS [Suspect]
     Route: 065

REACTIONS (1)
  - Suicide attempt [Unknown]
